FAERS Safety Report 7763267-8 (Version None)
Quarter: 2011Q3

REPORT INFORMATION
  Report Type: 
  Country: None (occurrence: None)
  Receive Date: 20110920
  Receipt Date: 20110906
  Transmission Date: 20111222
  Serious: Yes (Death)
  Sender: FDA-Public Use
  Company Number: US-ENDO PHARMACEUTICALS INC.-OPIR20110051

PATIENT
  Age: 41 Year
  Sex: Male

DRUGS (1)
  1. OPANA [Suspect]
     Dosage: UNK
     Route: 065

REACTIONS (1)
  - TOXICITY TO VARIOUS AGENTS [None]
